FAERS Safety Report 7215045-6 (Version None)
Quarter: 2011Q1

REPORT INFORMATION
  Report Type: 
  Country: None (occurrence: None)
  Receive Date: 20110107
  Receipt Date: 20100722
  Transmission Date: 20110831
  Serious: No
  Sender: FDA-Public Use
  Company Number: A0871887A

PATIENT
  Age: 74 Year
  Sex: Female

DRUGS (6)
  1. DIOVAN [Concomitant]
  2. VITAMIN D [Concomitant]
  3. VITAMIN A [Concomitant]
  4. LOVAZA [Suspect]
     Dosage: 4CAP PER DAY
     Route: 048
     Dates: start: 20091201, end: 20100601
  5. CRESTOR [Concomitant]
  6. METOPROLOL [Concomitant]

REACTIONS (1)
  - DYSPNOEA [None]
